FAERS Safety Report 8981423 (Version 2)
Quarter: 2013Q1

REPORT INFORMATION
  Report Type: Spontaneous
  Country: US (occurrence: US)
  Receive Date: 20121221
  Receipt Date: 20130104
  Transmission Date: 20140127
  Serious: No
  Sender: FDA-Public Use
  Company Number: US-PFIZER INC-2012323401

PATIENT
  Age: 60 Year
  Sex: Female

DRUGS (1)
  1. MECLOZINE HCL [Suspect]
     Dosage: 25 MG, 2X/DAY

REACTIONS (4)
  - Dizziness [Unknown]
  - Somnolence [Unknown]
  - Asthenia [Unknown]
  - Nausea [Unknown]
